FAERS Safety Report 15844873 (Version 1)
Quarter: 2019Q1

REPORT INFORMATION
  Report Type: Spontaneous
  Country: FR (occurrence: FR)
  Receive Date: 20190118
  Receipt Date: 20190118
  Transmission Date: 20190417
  Serious: Yes (Hospitalization)
  Sender: FDA-Public Use
  Company Number: FR-MYLANLABS-2019M1003720

PATIENT
  Age: 90 Year
  Sex: Male

DRUGS (4)
  1. ALFUZOSIN [Suspect]
     Active Substance: ALFUZOSIN
     Indication: BENIGN PROSTATIC HYPERPLASIA
     Dosage: 10 MILLIGRAM, QD
     Route: 048
  2. SERESTA [Suspect]
     Active Substance: OXAZEPAM
     Indication: ABNORMAL BEHAVIOUR
     Dosage: 1 DOSAGE FORM, QD
     Route: 048
     Dates: start: 201802
  3. TIAPRIDE [Suspect]
     Active Substance: TIAPRIDE
     Indication: ABNORMAL BEHAVIOUR
     Dosage: 0.5 DOSAGE FORM, QD
     Route: 048
     Dates: start: 201802
  4. BISOCE 1,25 MG, COMPRIM? PELLICUL? [Suspect]
     Active Substance: BISOPROLOL FUMARATE
     Indication: HYPERTENSION
     Dosage: 1 DOSAGE FORM, QD
     Route: 048

REACTIONS (2)
  - Clavicle fracture [Recovering/Resolving]
  - Fall [Recovering/Resolving]

NARRATIVE: CASE EVENT DATE: 20180612
